FAERS Safety Report 13566253 (Version 1)
Quarter: 2017Q2

REPORT INFORMATION
  Report Type: Spontaneous
  Country: US (occurrence: US)
  Receive Date: 20170519
  Receipt Date: 20170519
  Transmission Date: 20170830
  Serious: No
  Sender: FDA-Public Use
  Company Number: None

PATIENT
  Age: 70 Year
  Sex: Female
  Weight: 135 kg

DRUGS (6)
  1. GLIMPIRIDE [Concomitant]
     Active Substance: GLIMEPIRIDE
  2. LABETALOL [Concomitant]
     Active Substance: LABETALOL\LABETALOL HYDROCHLORIDE
  3. PROBIOTICS [Concomitant]
     Active Substance: PROBIOTICS NOS
  4. ESCITALOPRAM [Suspect]
     Active Substance: ESCITALOPRAM OXALATE
     Indication: DEPRESSION
     Dosage: ?          QUANTITY:1 TABLET(S);?
     Route: 048
     Dates: start: 20021201, end: 20170417
  5. SYNTHROID [Concomitant]
     Active Substance: LEVOTHYROXINE SODIUM
  6. DEXILANT [Concomitant]
     Active Substance: DEXLANSOPRAZOLE

REACTIONS (4)
  - Jaw disorder [None]
  - Migraine [None]
  - Tremor [None]
  - Muscle fatigue [None]
